FAERS Safety Report 4796826-5 (Version None)
Quarter: 2005Q3

REPORT INFORMATION
  Report Type: 
  Country: None (occurrence: None)
  Receive Date: 20050916
  Receipt Date: 20050610
  Transmission Date: 20060218
  Serious: Yes (Other)
  Sender: FDA-Public Use
  Company Number: US-JNJFOC-20050500449

PATIENT
  Age: 3 Month
  Sex: Female
  Weight: 5.8968 kg

DRUGS (5)
  1. TOPAMAX [Suspect]
     Indication: CONVULSION
     Dosage: 12.5 MG, 2 IN 1 DAY, ORAL
     Route: 048
     Dates: start: 20050407
  2. KEPPRA [Concomitant]
  3. PYRIDOXINE HCL [Concomitant]
  4. CLONAZEPAM [Concomitant]
  5. DIASTAT (DIAZEPAM) GEL [Concomitant]

REACTIONS (1)
  - CONVULSION [None]
